FAERS Safety Report 4885812-2 (Version None)
Quarter: 2006Q1

REPORT INFORMATION
  Report Type: 
  Country: None (occurrence: None)
  Receive Date: 20060117
  Receipt Date: 20060102
  Transmission Date: 20060701
  Serious: Yes (Other)
  Sender: FDA-Public Use
  Company Number: 2005058588

PATIENT
  Age: 38 Year
  Sex: Female
  Weight: 78 kg

DRUGS (7)
  1. GENOTONORM (SOMATROPIN) [Suspect]
     Indication: HYPOPITUITARISM
     Dosage: 0.8 MG (0.8 MG, DAILY), SUBCUTANEOUS
     Route: 058
     Dates: start: 19981012, end: 19990430
  2. GENOTONORM (SOMATROPIN) [Suspect]
     Indication: HYPOPITUITARISM
     Dosage: 0.8 MG (0.8 MG, DAILY), SUBCUTANEOUS
     Route: 058
     Dates: start: 20000405, end: 20030704
  3. GENOTONORM (SOMATROPIN) [Suspect]
     Indication: HYPOPITUITARISM
     Dosage: 0.8 MG (0.8 MG, DAILY), SUBCUTANEOUS
     Route: 058
     Dates: start: 20030804
  4. PROPRANOLOL [Concomitant]
  5. HYDROCORTISONE [Concomitant]
  6. DOMPERIDONE (DOMPERIDONE) [Concomitant]
  7. MENOPUR [Concomitant]

REACTIONS (2)
  - ABORTION SPONTANEOUS [None]
  - DRUG EXPOSURE DURING PREGNANCY [None]
